FAERS Safety Report 7033765-3 (Version None)
Quarter: 2010Q4

REPORT INFORMATION
  Report Type: 
  Country: None (occurrence: None)
  Receive Date: 20101007
  Receipt Date: 20100921
  Transmission Date: 20110411
  Serious: Yes (Other)
  Sender: FDA-Public Use
  Company Number: PHHY2010BR65114

PATIENT
  Age: 74 Year
  Sex: Male

DRUGS (9)
  1. METFORMIN HCL [Suspect]
     Dosage: 850 MG/DAY
  2. HYDROCHLOROTHIAZIDE [Suspect]
     Dosage: 25MG/DAY
  3. GLICLAZIDE [Suspect]
     Dosage: 30MG/DAY
  4. DILTIAZEM [Suspect]
     Dosage: 60MG/DAY
  5. SIMVASTATIN [Suspect]
     Dosage: 20MG/DAY
  6. OMEPRAZOLE [Suspect]
     Dosage: 20 MG/DAY
  7. DOMPERIDONE [Suspect]
     Dosage: 20 MG/DAY
  8. MESALAMINE [Suspect]
     Dosage: 800 MG/DAY
  9. PIOGLITAZONE [Suspect]
     Dosage: 15 MG ONCE DAILY

REACTIONS (6)
  - BLOOD GLUCOSE ABNORMAL [None]
  - BLOOD URIC ACID INCREASED [None]
  - BODY MASS INDEX INCREASED [None]
  - GASTROINTESTINAL HAEMORRHAGE [None]
  - MICROALBUMINURIA [None]
  - WEIGHT INCREASED [None]
